FAERS Safety Report 6737905-2 (Version None)
Quarter: 2010Q2

REPORT INFORMATION
  Report Type: 
  Country: None (occurrence: None)
  Receive Date: 20100524
  Receipt Date: 20100511
  Transmission Date: 20101027
  Serious: Yes (Other)
  Sender: FDA-Public Use
  Company Number: PHHY2010IE31100

PATIENT
  Age: 57 Year
  Sex: Female

DRUGS (2)
  1. DICLOFENAC [Suspect]
     Indication: JUVENILE ARTHRITIS
     Dosage: 75 MG
  2. PREDNISOLONE [Concomitant]
     Dosage: 5 MG DAILY

REACTIONS (4)
  - COLITIS ULCERATIVE [None]
  - COLONIC STENOSIS [None]
  - GASTRITIS [None]
  - GASTROINTESTINAL DISORDER [None]
